FAERS Safety Report 6270516-4 (Version None)
Quarter: 2009Q3

REPORT INFORMATION
  Report Type: 
  Country: None (occurrence: None)
  Receive Date: 20090716
  Receipt Date: 20090707
  Transmission Date: 20100115
  Serious: Yes (Other)
  Sender: FDA-Public Use
  Company Number: NL-NAPPMUNDI-GBR-2009-0005339

PATIENT
  Sex: Male

DRUGS (6)
  1. OXYCONTIN [Suspect]
     Indication: NEURALGIA
     Dosage: 5 MG, BID
     Route: 065
     Dates: start: 20080307, end: 20080506
  2. PAROXETINE HCL [Concomitant]
     Dosage: 20 MG, UNK
     Route: 065
  3. AMITRIPTYLINE [Concomitant]
     Dosage: 25 MG, UNK
     Route: 065
  4. ASCAL                              /00002702/ [Concomitant]
     Dosage: 100 MG, UNK
     Route: 065
  5. LIPITOR [Concomitant]
     Dosage: 40 MG, UNK
     Route: 065
  6. METOPROLOL SUCCINATE [Concomitant]
     Dosage: 100 MG, UNK
     Route: 065

REACTIONS (1)
  - INFECTION [None]
